FAERS Safety Report 9303835 (Version 2)
Quarter: 2013Q2

REPORT INFORMATION
  Report Type: Spontaneous
  Country: HU (occurrence: HU)
  Receive Date: 20130522
  Receipt Date: 20130603
  Transmission Date: 20140414
  Serious: Yes (Hospitalization)
  Sender: FDA-Public Use
  Company Number: HU-TEVA-405629ISR

PATIENT
  Age: 63 Year
  Sex: Female

DRUGS (1)
  1. METHYLPREDNISOLONE [Suspect]
     Indication: SARCOIDOSIS
     Dosage: LONG-TERM, INTERMITTENT
     Route: 065

REACTIONS (1)
  - Malacoplakia vesicae [Recovered/Resolved]
